FAERS Safety Report 8533924-4 (Version None)
Quarter: 2012Q3

REPORT INFORMATION
  Report Type: 
  Country: None (occurrence: None)
  Receive Date: 20120724
  Receipt Date: 20120716
  Transmission Date: 20120928
  Serious: Yes (Hospitalization)
  Sender: FDA-Public Use
  Company Number: CA-JNJFOC-20120707753

PATIENT
  Sex: Female
  Weight: 78.1 kg

DRUGS (2)
  1. REMICADE [Suspect]
     Indication: CROHN'S DISEASE
     Route: 042
     Dates: start: 20120419
  2. REMICADE [Suspect]
     Dosage: WEEK 6 INFUSION
     Route: 042
     Dates: start: 20120531

REACTIONS (3)
  - INTESTINAL RESECTION [None]
  - ABSCESS [None]
  - INFECTION [None]
